FAERS Safety Report 25114989 (Version 1)
Quarter: 2025Q1

REPORT INFORMATION
  Report Type: Spontaneous
  Country: US (occurrence: None)
  Receive Date: 20250324
  Receipt Date: 20250324
  Transmission Date: 20250408
  Serious: No
  Sender: FDA-CTU
  Company Number: None

PATIENT
  Age: 49 Year
  Sex: Male
  Weight: 81.9 kg

DRUGS (2)
  1. MAVYRET [Suspect]
     Active Substance: GLECAPREVIR\PIBRENTASVIR
     Indication: Hepatitis B
     Dosage: 100 MG DAILY ORAL
     Route: 048
     Dates: start: 20250320
  2. PEPCID [Concomitant]
     Active Substance: FAMOTIDINE

REACTIONS (4)
  - Fatigue [None]
  - Vomiting [None]
  - Diarrhoea [None]
  - Decreased appetite [None]

NARRATIVE: CASE EVENT DATE: 20250320
